FAERS Safety Report 12966445 (Version 1)
Quarter: 2016Q4

REPORT INFORMATION
  Report Type: Spontaneous
  Country: RO (occurrence: RO)
  Receive Date: 20161122
  Receipt Date: 20161122
  Transmission Date: 20170207
  Serious: Yes (Other)
  Sender: FDA-Public Use
  Company Number: RO-AMGEN-ROUSP2016158499

PATIENT
  Age: 29 Year
  Sex: Male

DRUGS (4)
  1. MYDOCALM [Concomitant]
     Active Substance: TOLPERISONE
     Indication: PAIN
     Dosage: 10 DAYS/ MONTH, AS NEEDED
     Route: 048
  2. ENBREL [Suspect]
     Active Substance: ETANERCEPT
     Dosage: UNK
     Route: 065
  3. CELEBREX [Concomitant]
     Active Substance: CELECOXIB
     Indication: PAIN
     Dosage: 10 DAYS/ MONTH, AS NEEDED
     Route: 048
  4. ENBREL [Suspect]
     Active Substance: ETANERCEPT
     Indication: ANKYLOSING SPONDYLITIS
     Dosage: 50 MG, WEEKLY
     Route: 058
     Dates: start: 2013, end: 201511

REACTIONS (2)
  - Tuberculosis [Recovering/Resolving]
  - Immune system disorder [Unknown]

NARRATIVE: CASE EVENT DATE: 201511
